FAERS Safety Report 15037040 (Version 2)
Quarter: 2018Q2

REPORT INFORMATION
  Report Type: Report from Study
  Country: NL (occurrence: NL)
  Receive Date: 20180620
  Receipt Date: 20180626
  Transmission Date: 20180711
  Serious: Yes (Hospitalization)
  Sender: FDA-Public Use
  Company Number: NL-SEATTLE GENETICS-2018SGN01404

PATIENT

DRUGS (11)
  1. DEXAMETHASONE. [Suspect]
     Active Substance: DEXAMETHASONE
     Indication: DIFFUSE LARGE B-CELL LYMPHOMA
     Dosage: 40 MG, UNK
     Route: 065
     Dates: start: 20180607
  2. CISPLATIN. [Suspect]
     Active Substance: CISPLATIN
     Dosage: 219 MG, UNK
     Route: 065
     Dates: start: 20180608, end: 20180609
  3. PEGFILGRASTIM [Suspect]
     Active Substance: PEGFILGRASTIM
     Dosage: 6 MG, UNK
     Route: 065
     Dates: start: 20180611, end: 20180611
  4. DEXAMETHASONE. [Suspect]
     Active Substance: DEXAMETHASONE
     Dosage: 40 MG, UNK
     Route: 065
     Dates: start: 20180607, end: 20180610
  5. RITUXIMAB. [Suspect]
     Active Substance: RITUXIMAB
     Indication: DIFFUSE LARGE B-CELL LYMPHOMA
     Dosage: 800 MG, UNK
     Route: 065
     Dates: start: 20180607
  6. RITUXIMAB. [Suspect]
     Active Substance: RITUXIMAB
     Dosage: 800 MG, UNK
     Route: 065
     Dates: start: 20180607, end: 20180607
  7. CISPLATIN. [Suspect]
     Active Substance: CISPLATIN
     Indication: DIFFUSE LARGE B-CELL LYMPHOMA
     Dosage: 219 MG, UNK
     Route: 065
     Dates: start: 20180608
  8. CYTARABINE. [Suspect]
     Active Substance: CYTARABINE
     Indication: DIFFUSE LARGE B-CELL LYMPHOMA
     Dosage: 8800 MG, UNK
     Route: 065
     Dates: start: 20180609
  9. PEGFILGRASTIM [Suspect]
     Active Substance: PEGFILGRASTIM
     Indication: DIFFUSE LARGE B-CELL LYMPHOMA
     Dosage: 6 MG, UNK
     Route: 065
     Dates: start: 20180611
  10. CYTARABINE. [Suspect]
     Active Substance: CYTARABINE
     Dosage: 8800 MG, UNK
     Route: 065
     Dates: start: 20180609, end: 20180609
  11. BRENTUXIMAB VEDOTIN-MPI [Suspect]
     Active Substance: BRENTUXIMAB VEDOTIN
     Indication: DIFFUSE LARGE B-CELL LYMPHOMA
     Dosage: 180 MG, UNK
     Route: 065
     Dates: start: 20180607, end: 20180607

REACTIONS (1)
  - Tumour lysis syndrome [Recovered/Resolved]

NARRATIVE: CASE EVENT DATE: 20180614
